FAERS Safety Report 7282335-0 (Version None)
Quarter: 2011Q1

REPORT INFORMATION
  Report Type: 
  Country: None (occurrence: None)
  Receive Date: 20110209
  Receipt Date: 20110203
  Transmission Date: 20110831
  Serious: Yes (Other)
  Sender: FDA-Public Use
  Company Number: US-TEVA-265842USA

PATIENT
  Sex: Male

DRUGS (2)
  1. PIMOZIDE TABLETS [Suspect]
  2. GABAPENTIN [Suspect]

REACTIONS (3)
  - TARDIVE DYSKINESIA [None]
  - HEADACHE [None]
  - TREMOR [None]
